FAERS Safety Report 7370793 (Version 2)
Quarter: 2020Q3

REPORT INFORMATION
  Report Type: Spontaneous
  Country: NL (occurrence: None)
  Receive Date: 20100419
  Receipt Date: 20100511
  Transmission Date: 20201105
  Serious: Yes (Hospitalization)
  Sender: FDA-Public Use
  Company Number: 557465

PATIENT
  Age: 47 Year
  Sex: Female

DRUGS (25)
  1. ROCURONIUM BROMIDE. [Suspect]
     Active Substance: ROCURONIUM BROMIDE
     Dosage: INTRAVENOUS
     Route: 042
     Dates: start: 20100219, end: 20100219
  2. ACUPAN [Suspect]
     Active Substance: NEFOPAM HYDROCHLORIDE
     Dosage: INTRAVENOUS
     Route: 042
     Dates: start: 20100220, end: 20100221
  3. (TAZOCILLINE) [Concomitant]
  4. SUFENTA [Suspect]
     Active Substance: SUFENTANIL CITRATE
     Dosage: INTRAVENOUS
     Route: 042
     Dates: start: 20100219, end: 20100302
  5. KETAMINE [Suspect]
     Active Substance: KETAMINE
     Dosage: INTRAVENOUS
     Route: 042
     Dates: start: 20100219, end: 20100219
  6. ATARAX [Suspect]
     Active Substance: HYDROXYZINE HYDROCHLORIDE
     Dosage: INTRAVENOUS
     Route: 042
     Dates: start: 20100220, end: 20100220
  7. HYPNOVEL /00634103/ [Suspect]
     Active Substance: MIDAZOLAM HYDROCHLORIDE
     Dosage: 1 MG MILLIGRAM(S), INTRAVENOUS
     Route: 042
     Dates: start: 20100219, end: 20100219
  8. GENTAMICIN SULFATE. [Suspect]
     Active Substance: GENTAMICIN SULFATE
     Dosage: INTRAVENOUS
     Route: 042
     Dates: start: 20100222, end: 20100223
  9. (LARGACTIL /00011902/) [Concomitant]
  10. (ACTIBIL) [Concomitant]
  11. LOVENOX [Suspect]
     Active Substance: ENOXAPARIN SODIUM
     Dosage: SUBCUTANEOUS
     Route: 058
     Dates: start: 20100220, end: 20100226
  12. ALMITRINE [Suspect]
     Active Substance: ALMITRINE
     Dosage: INTRAVENOUS
     Route: 042
     Dates: start: 20100222, end: 20100224
  13. NIMBEX [Suspect]
     Active Substance: CISATRACURIUM BESYLATE
     Dosage: INTRAVENOUS
     Route: 042
     Dates: start: 20100222, end: 20100224
  14. EPHEDRINE. [Suspect]
     Active Substance: EPHEDRINE
     Dosage: INTRAVENOUS
     Route: 042
     Dates: start: 20100219, end: 20100219
  15. METFORMIN [Concomitant]
     Active Substance: METFORMIN HYDROCHLORIDE
  16. PRAVASTATIN SODIUM. [Concomitant]
     Active Substance: PRAVASTATIN SODIUM
  17. INSULIN HUMAN NOS [Suspect]
     Active Substance: INSULIN HUMAN
     Dates: start: 20100219, end: 20100219
  18. HUMALOG [Suspect]
     Active Substance: INSULIN LISPRO
     Dosage: SUBCUTANEOUS
     Route: 058
     Dates: start: 20100219
  19. PROPOFOL. [Suspect]
     Active Substance: PROPOFOL
     Dosage: INTRAVENOUS
     Route: 042
     Dates: start: 20100209, end: 20100302
  20. AMOXICILLIN AND CLAVULANATE POTASSIUM [Suspect]
     Active Substance: AMOXICILLIN\CLAVULANATE POTASSIUM
     Dosage: INTRAVENOUS
     Route: 042
     Dates: start: 20100219, end: 20100224
  21. TRACRIUM [Suspect]
     Active Substance: ATRACURIUM BESYLATE
     Dosage: INTRAVENOUS
     Route: 042
     Dates: start: 20100219, end: 20100219
  22. ANAFRANIL [Concomitant]
     Active Substance: CLOMIPRAMINE HYDROCHLORIDE
  23. OMEPRAZOLE. [Suspect]
     Active Substance: OMEPRAZOLE
     Dosage: 40 MG MILLIGRAM(S), INTRAVENOUS
     Route: 042
     Dates: start: 20100219, end: 20100302
  24. CANCIDAS [Suspect]
     Active Substance: CASPOFUNGIN ACETATE
     Dosage: 50 MG MILLIGRAM(S), INTRAVENOUS
     Route: 042
     Dates: start: 20100222, end: 20100225
  25. (TARDYFERON /00023503/) [Concomitant]

REACTIONS (9)
  - Bacteroides infection [None]
  - Skin lesion [None]
  - Enterobacter infection [None]
  - Renal failure [None]
  - Haemodialysis [None]
  - Drug eruption [None]
  - Pleural effusion [None]
  - Acute respiratory distress syndrome [None]
  - Septic shock [None]

NARRATIVE: CASE EVENT DATE: 20100302
